FAERS Safety Report 12259677 (Version 1)
Quarter: 2016Q2

REPORT INFORMATION
  Report Type: Spontaneous
  Country: US (occurrence: US)
  Receive Date: 20160412
  Receipt Date: 20160412
  Transmission Date: 20160815
  Serious: No
  Sender: FDA-Public Use
  Company Number: US-SA-2015SA108154

PATIENT
  Age: 32 Year
  Sex: Female

DRUGS (1)
  1. ALLEGRA [Suspect]
     Active Substance: FEXOFENADINE HYDROCHLORIDE
     Indication: MULTIPLE ALLERGIES
     Dosage: TAKEN FROM 2 MONTH AGO?GELCAP
     Route: 065

REACTIONS (4)
  - Feeling abnormal [Unknown]
  - Abdominal pain upper [Unknown]
  - Dyspepsia [Unknown]
  - Hypothyroidism [Unknown]
